FAERS Safety Report 23510600 (Version 1)
Quarter: 2024Q1

REPORT INFORMATION
  Report Type: Spontaneous
  Country: US (occurrence: US)
  Receive Date: 20240211
  Receipt Date: 20240211
  Transmission Date: 20240410
  Serious: No
  Sender: FDA-Public Use
  Company Number: US-AIMMUNE THERAPEUTICS, INC.-2023AIMT01283

PATIENT

DRUGS (3)
  1. PALFORZIA [Suspect]
     Active Substance: PEANUT
     Indication: Food allergy
     Dosage: IDE (0.5MG-1MG), ONCE
     Route: 048
     Dates: start: 20231102, end: 20231102
  2. PALFORZIA [Suspect]
     Active Substance: PEANUT
     Dosage: 1 MG, ONCE, DURING IDE, LAST DOSE PRIOR TO EVENTS
     Route: 048
     Dates: start: 20231102, end: 20231102
  3. PALFORZIA [Suspect]
     Active Substance: PEANUT
     Dosage: 1 MG, 1X/DAY, RESTARTED
     Route: 048
     Dates: start: 20231106

REACTIONS (4)
  - Rhinorrhoea [Recovered/Resolved]
  - Abdominal discomfort [Recovered/Resolved]
  - Abdominal pain upper [Unknown]
  - Nausea [Unknown]

NARRATIVE: CASE EVENT DATE: 20231102
